FAERS Safety Report 5522204-7 (Version None)
Quarter: 2007Q4

REPORT INFORMATION
  Report Type: 
  Country: None (occurrence: None)
  Receive Date: 20071120
  Receipt Date: 20071112
  Transmission Date: 20080405
  Serious: Yes (Hospitalization)
  Sender: FDA-Public Use
  Company Number: B0495672A

PATIENT
  Age: 58 Year
  Sex: Female
  Weight: 57 kg

DRUGS (5)
  1. LAPATINIB [Suspect]
     Dosage: 1250MG PER DAY
     Route: 048
     Dates: start: 20070721, end: 20071109
  2. CAPECITABINE [Suspect]
     Dosage: 2300MG PER DAY
     Route: 048
     Dates: start: 20070720, end: 20071108
  3. SPIRONOLACTONE [Concomitant]
     Dosage: 25MG PER DAY
     Route: 048
  4. FRUSEMIDE [Concomitant]
     Dosage: 40MG PER DAY
     Route: 048
  5. LANSOPRAZOLE [Concomitant]
     Dosage: 30MG PER DAY
     Route: 048

REACTIONS (1)
  - ASTHENIA [None]
